FAERS Safety Report 14295876 (Version 1)
Quarter: 2017Q4

REPORT INFORMATION
  Report Type: Report from Study
  Country: US (occurrence: US)
  Receive Date: 20171218
  Receipt Date: 20171218
  Transmission Date: 20180321
  Serious: Yes (Hospitalization)
  Sender: FDA-Public Use
  Company Number: PHHO2017US016716

PATIENT
  Age: 65 Year
  Sex: Female

DRUGS (7)
  1. CISPLATIN. [Concomitant]
     Active Substance: CISPLATIN
     Indication: NEOPLASM
     Dosage: UNK
     Route: 065
     Dates: start: 201305, end: 201305
  2. FEMARA [Concomitant]
     Active Substance: LETROZOLE
     Indication: NEOPLASM
     Dosage: UNK
     Route: 065
     Dates: start: 201503, end: 201702
  3. AFINITOR [Suspect]
     Active Substance: EVEROLIMUS
     Indication: NEOPLASM
     Dosage: 10 MG, QD
     Route: 048
     Dates: start: 20170901, end: 20171114
  4. TAXOL [Concomitant]
     Active Substance: PACLITAXEL
     Indication: NEOPLASM
     Route: 065
  5. PREDNISONE. [Concomitant]
     Active Substance: PREDNISONE
     Indication: PRODUCT USED FOR UNKNOWN INDICATION
     Route: 065
  6. DURVALUMAB. [Concomitant]
     Active Substance: DURVALUMAB
     Indication: NEOPLASM
     Dosage: UNK
     Route: 065
     Dates: start: 201704, end: 201707
  7. CISPLATIN. [Concomitant]
     Active Substance: CISPLATIN
     Dosage: UNK
     Route: 065
     Dates: start: 201405, end: 201409

REACTIONS (1)
  - Hypoxia [Recovered/Resolved]

NARRATIVE: CASE EVENT DATE: 20171122
